FAERS Safety Report 6727425-3 (Version None)
Quarter: 2010Q2

REPORT INFORMATION
  Report Type: 
  Country: None (occurrence: None)
  Receive Date: 20100517
  Receipt Date: 20100507
  Transmission Date: 20101027
  Serious: Yes (Other)
  Sender: FDA-Public Use
  Company Number: US-ABBOTT-10P-163-0636070-00

PATIENT
  Sex: Female
  Weight: 68.1 kg

DRUGS (17)
  1. HUMIRA [Suspect]
     Indication: CROHN'S DISEASE
     Dates: start: 20090401
  2. HUMIRA [Suspect]
     Indication: RHEUMATOID ARTHRITIS
  3. VITAMIN B-12 [Concomitant]
     Indication: VITAMIN B12 DECREASED
     Dates: start: 20100201
  4. VITAMIN B-12 [Concomitant]
     Route: 050
  5. VITAMIN B-12 [Concomitant]
     Route: 050
  6. METHOTREXATE [Concomitant]
     Indication: DRUG USE FOR UNKNOWN INDICATION
     Route: 058
     Dates: start: 20090101
  7. TOPROL-XL [Concomitant]
     Indication: HYPERTENSION
  8. MORPHINE [Concomitant]
     Indication: DRUG USE FOR UNKNOWN INDICATION
  9. HYDROMORPHONE HCL [Concomitant]
     Indication: DRUG USE FOR UNKNOWN INDICATION
     Dosage: 8 MG AT LUNCH AND 4 MG AT DINNER TIME PRN
  10. PHENERGAN [Concomitant]
     Indication: NAUSEA
  11. CREON [Concomitant]
     Indication: PANCREATIC ENZYMES
     Dosage: WITH EACH MEAL OR SNACK
  12. BENTYL [Concomitant]
     Indication: ABDOMINAL PAIN UPPER
  13. ZOLPIDEM [Concomitant]
     Indication: INSOMNIA
  14. CALCIUM [Concomitant]
     Indication: DRUG USE FOR UNKNOWN INDICATION
  15. POTASSIUM [Concomitant]
     Indication: BLOOD POTASSIUM DECREASED
     Route: 042
  16. POTASSIUM [Concomitant]
     Route: 050
  17. VITAMIN D [Concomitant]
     Indication: DRUG USE FOR UNKNOWN INDICATION

REACTIONS (12)
  - DYSPNOEA [None]
  - GENERALISED OEDEMA [None]
  - HYPOAESTHESIA [None]
  - ILL-DEFINED DISORDER [None]
  - INJECTION SITE PAIN [None]
  - OESOPHAGEAL STENOSIS [None]
  - PAIN [None]
  - PERICARDIAL EFFUSION [None]
  - PNEUMONIA [None]
  - SMALL INTESTINAL STENOSIS [None]
  - SPINAL CORD NEOPLASM [None]
  - WEIGHT INCREASED [None]
